FAERS Safety Report 20356795 (Version 1)
Quarter: 2022Q1

REPORT INFORMATION
  Report Type: Spontaneous
  Country: US (occurrence: US)
  Receive Date: 20220120
  Receipt Date: 20220120
  Transmission Date: 20220424
  Serious: No
  Sender: FDA-Public Use
  Company Number: US-PFIZER INC-202101418371

PATIENT
  Sex: Male

DRUGS (1)
  1. LYRICA [Suspect]
     Active Substance: PREGABALIN
     Dosage: UNK
     Dates: start: 20211019

REACTIONS (7)
  - Dry mouth [Unknown]
  - Disturbance in attention [Unknown]
  - Tremor [Unknown]
  - Vision blurred [Unknown]
  - Dizziness [Unknown]
  - Abnormal weight gain [Unknown]
  - Abdominal distension [Unknown]

NARRATIVE: CASE EVENT DATE: 20211001
